FAERS Safety Report 10266344 (Version 1)
Quarter: 2014Q2

REPORT INFORMATION
  Report Type: Spontaneous
  Country: US (occurrence: None)
  Receive Date: 20140625
  Receipt Date: 20140625
  Transmission Date: 20141212
  Serious: No
  Sender: FDA-Public Use
  Company Number: None

PATIENT
  Age: 56 Year
  Sex: Male
  Weight: 104.33 kg

DRUGS (11)
  1. DORZOLAMIDE /TIMOLOL MALEATE [Suspect]
     Indication: GLAUCOMA
     Dosage: 1 DROP BOTH EYES TWICE PER DAY
     Dates: start: 2014
  2. SINGULAIR [Concomitant]
  3. LOSARTAN HCL [Concomitant]
  4. CRESTOR [Concomitant]
  5. BEPICOL [Concomitant]
  6. LEVOCETIRIZINE [Concomitant]
  7. FENOFIBRATE [Concomitant]
  8. FISH OIL [Concomitant]
  9. UBIQUINOL [Concomitant]
  10. BILBERRY EXTRACT [Concomitant]
  11. PYENOGRAWL [Concomitant]

REACTIONS (2)
  - Blood pressure diastolic decreased [None]
  - Glaucoma [None]
